FAERS Safety Report 8152479-X (Version None)
Quarter: 2012Q1

REPORT INFORMATION
  Report Type: 
  Country: None (occurrence: None)
  Receive Date: 20120221
  Receipt Date: 20120213
  Transmission Date: 20120608
  Serious: Yes (Other)
  Sender: FDA-Public Use
  Company Number: US-BAYER-2012-014767

PATIENT
  Age: 39 Year
  Sex: Female

DRUGS (1)
  1. MIRENA [Suspect]
     Indication: CONTRACEPTION
     Dosage: 20 ?G, CONT
     Dates: start: 20120127

REACTIONS (9)
  - VAGINAL HAEMORRHAGE [None]
  - COLD SWEAT [None]
  - MEDICAL DEVICE COMPLICATION [None]
  - DIZZINESS [None]
  - PALLOR [None]
  - HYPERHIDROSIS [None]
  - ABDOMINAL PAIN [None]
  - PRESYNCOPE [None]
  - FEELING COLD [None]
